FAERS Safety Report 6849151-2 (Version None)
Quarter: 2010Q3

REPORT INFORMATION
  Report Type: 
  Country: None (occurrence: None)
  Receive Date: 20100716
  Receipt Date: 20100706
  Transmission Date: 20110219
  Serious: Yes (Other)
  Sender: FDA-Public Use
  Company Number: PHHY2010US42836

PATIENT
  Sex: Male
  Weight: 91.156 kg

DRUGS (3)
  1. EXJADE [Suspect]
     Indication: FAMILIAL POLYCYTHAEMIA
     Dosage: 125 MG DAILY
     Route: 048
     Dates: start: 20100403
  2. ASPIRIN [Concomitant]
  3. SPIRONOLACTONE [Concomitant]

REACTIONS (9)
  - DECREASED APPETITE [None]
  - DERMATITIS DIAPER [None]
  - DIARRHOEA [None]
  - INSOMNIA [None]
  - PAIN IN EXTREMITY [None]
  - PARAESTHESIA [None]
  - PHANTOM PAIN [None]
  - SKIN ODOUR ABNORMAL [None]
  - WHEELCHAIR USER [None]
